FAERS Safety Report 12657948 (Version 1)
Quarter: 2016Q3

REPORT INFORMATION
  Report Type: Spontaneous
  Country: US (occurrence: US)
  Receive Date: 20160817
  Receipt Date: 20160817
  Transmission Date: 20161109
  Serious: No
  Sender: FDA-Public Use
  Company Number: US-ASTRAZENECA-2016SE83861

PATIENT

DRUGS (2)
  1. SYMBICORT [Suspect]
     Active Substance: BUDESONIDE\FORMOTEROL FUMARATE DIHYDRATE
     Dosage: 100MCG/3MCG
     Route: 055
  2. NICOTINE. [Interacting]
     Active Substance: NICOTINE
     Dosage: 3 MG
     Route: 065

REACTIONS (3)
  - Drug interaction [Unknown]
  - Asthenopia [Unknown]
  - Hallucination [Unknown]
